FAERS Safety Report 4681985-5 (Version None)
Quarter: 2005Q2

REPORT INFORMATION
  Report Type: 
  Country: None (occurrence: None)
  Receive Date: 20050526
  Receipt Date: 20050316
  Transmission Date: 20051028
  Serious: Yes (Other)
  Sender: FDA-Public Use
  Company Number: US-JNJFOC-20050304751

PATIENT
  Sex: Female
  Weight: 77.1115 kg

DRUGS (2)
  1. RISPERDAL [Suspect]
     Dosage: 50 MG, 1 IN 2 WEEK, INTRAMUSCULAR
     Route: 030
     Dates: start: 20041101
  2. DEPAKOTE [Suspect]

REACTIONS (1)
  - WEIGHT INCREASED [None]
